FAERS Safety Report 4281601-0 (Version None)
Quarter: 2004Q2

REPORT INFORMATION
  Report Type: 
  Country: None (occurrence: None)
  Receive Date: 20040128
  Receipt Date: 20031008
  Transmission Date: 20050107
  Serious: Yes (Death)
  Sender: FDA-Public Use
  Company Number: M2003.6125

PATIENT
  Age: 49 Year
  Sex: Female
  Weight: 31 kg

DRUGS (1)
  1. RIMSTAR(4-D T37080+TAB), BIOCHEMIE WIEN MANUFACTURER [Suspect]
     Indication: PULMONARY TUBERCULOSIS
     Dosage: ORAL
     Route: 048
     Dates: start: 20030725, end: 20030730

REACTIONS (1)
  - ROAD TRAFFIC ACCIDENT [None]
